FAERS Safety Report 21527493 (Version 1)
Quarter: 2022Q4

REPORT INFORMATION
  Report Type: Spontaneous
  Country: CA (occurrence: CA)
  Receive Date: 20221031
  Receipt Date: 20221031
  Transmission Date: 20230112
  Serious: Yes (Life-Threatening, Disabling, Other)
  Sender: FDA-Public Use
  Company Number: None

PATIENT
  Age: 15 Year
  Sex: Male
  Weight: 68 kg

DRUGS (48)
  1. BORTEZOMIB [Suspect]
     Active Substance: BORTEZOMIB
     Indication: Lymphoma
     Dosage: INTRAVENOUS BOLUS
  2. DOXORUBICIN [Suspect]
     Active Substance: DOXORUBICIN
     Indication: Lymphoma
     Route: 042
  3. METHOTREXATE [Suspect]
     Active Substance: METHOTREXATE
     Indication: Lymphoma
     Route: 042
  4. CYCLOPHOSPHAMIDE [Suspect]
     Active Substance: CYCLOPHOSPHAMIDE
     Indication: Lymphoma
     Route: 042
  5. DEXAMETHASONE [Suspect]
     Active Substance: DEXAMETHASONE
     Indication: Lymphoma
     Dosage: INTRAARTICULAR, 1 EVERY 12 HOURS
     Route: 042
  6. PEGASPARGASE [Suspect]
     Active Substance: PEGASPARGASE
     Indication: Lymphoma
  7. ADCETRIS [Suspect]
     Active Substance: BRENTUXIMAB VEDOTIN
     Indication: Lymphoma
     Dosage: POWDER FOR SOLUTION
     Route: 042
  8. AMLODIPINE [Concomitant]
     Active Substance: AMLODIPINE BESYLATE
     Route: 065
  9. BECLOMETHASONE [Concomitant]
     Active Substance: BECLOMETHASONE
  10. BISACODYL [Concomitant]
     Active Substance: BISACODYL
  11. CALCIUM\CHOLECALCIFEROL [Concomitant]
     Active Substance: CALCIUM\CHOLECALCIFEROL
  12. CEFTAZIDIME [Concomitant]
     Active Substance: CEFTAZIDIME
     Dosage: POWDER FOR SOLUTION
  13. CIPROFLOXACIN [Concomitant]
     Active Substance: CIPROFLOXACIN
  14. CYCLOBENZAPRINE [Concomitant]
     Active Substance: CYCLOBENZAPRINE
  15. DICYCLOMINE HYDROCHLORIDE [Concomitant]
     Active Substance: DICYCLOMINE HYDROCHLORIDE
  16. DIMENHYDRINATE [Concomitant]
     Active Substance: DIMENHYDRINATE
  17. DIPHENHYDRAMINE [Concomitant]
     Active Substance: DIPHENHYDRAMINE
  18. ENOXAPARIN [Concomitant]
     Active Substance: ENOXAPARIN
  19. FAMOTIDINE [Concomitant]
     Active Substance: FAMOTIDINE
  20. FENTANYL [Concomitant]
     Active Substance: FENTANYL
  21. FILGRASTIM [Concomitant]
     Active Substance: FILGRASTIM
  22. FLUCONAZOLE [Concomitant]
     Active Substance: FLUCONAZOLE
  23. FUROSEMIDE [Concomitant]
     Active Substance: FUROSEMIDE
  24. HYDROCORTISONE [Concomitant]
     Active Substance: HYDROCORTISONE
  25. LANSOPRAZOLE [Concomitant]
     Active Substance: LANSOPRAZOLE
  26. LEUCOVORIN [Concomitant]
     Active Substance: LEUCOVORIN
  27. LORAZEPAM [Concomitant]
     Active Substance: LORAZEPAM
     Route: 065
  28. MAGNESIUM [Concomitant]
     Active Substance: MAGNESIUM
  29. MELATONIN [Concomitant]
     Active Substance: MELATONIN
  30. MEROPENEM [Concomitant]
     Active Substance: MEROPENEM
     Dosage: POWDER FOR SOLUTION
     Route: 042
  31. METOCLOPRAMIDE [Concomitant]
     Active Substance: METOCLOPRAMIDE
  32. MORPHINE [Concomitant]
     Active Substance: MORPHINE
  33. MYCAMINE [Concomitant]
     Active Substance: MICAFUNGIN SODIUM
  34. NIFEDIPINE [Concomitant]
     Active Substance: NIFEDIPINE
  35. OLANZAPINE [Concomitant]
     Active Substance: OLANZAPINE
  36. ONDANSETRON [Concomitant]
     Active Substance: ONDANSETRON
  37. PANTOPRAZOLE [Concomitant]
     Active Substance: PANTOPRAZOLE
  38. POLYETHYLENE GLYCOL [Concomitant]
     Active Substance: POLYETHYLENE GLYCOL
  39. POTASSIUM CHLORIDE [Concomitant]
     Active Substance: POTASSIUM CHLORIDE
  40. RANITIDINE [Concomitant]
     Active Substance: RANITIDINE
  41. SEVELAMER [Concomitant]
     Active Substance: SEVELAMER
  42. SODIUM [Concomitant]
     Active Substance: SODIUM
  43. SODIUM PHOSPHATE [Concomitant]
     Active Substance: SODIUM PHOSPHATE
  44. SUCRALFATE [Concomitant]
     Active Substance: SUCRALFATE
  45. THIAMINE HYDROCHLORIDE [Concomitant]
     Active Substance: THIAMINE HYDROCHLORIDE
  46. SULFAMETHOXAZOLE\TRIMETHOPRIM [Concomitant]
     Active Substance: SULFAMETHOXAZOLE\TRIMETHOPRIM
  47. VANCOMYCIN [Concomitant]
     Active Substance: VANCOMYCIN
  48. ZINECARD [Concomitant]
     Active Substance: DEXRAZOXANE HYDROCHLORIDE
     Dosage: POWDER FOR SOLUTION
     Route: 042

REACTIONS (6)
  - Aplastic anaemia [Unknown]
  - Hypogonadism [Unknown]
  - Hypothyroidism [Unknown]
  - Mucosal inflammation [Unknown]
  - Pancreatitis acute [Unknown]
  - Tumour lysis syndrome [Unknown]
